FAERS Safety Report 16686120 (Version 2)
Quarter: 2019Q3

REPORT INFORMATION
  Report Type: Report from Study
  Country: DE (occurrence: DE)
  Receive Date: 20190809
  Receipt Date: 20190809
  Transmission Date: 20191004
  Serious: Yes (Hospitalization)
  Sender: FDA-Public Use
  Company Number: DE-CELLTRION INC.-2019DE023336

PATIENT

DRUGS (5)
  1. NOVAMINSULFON [Concomitant]
     Active Substance: METAMIZOLE
     Dosage: 500 MG, 1-1-1-1
     Dates: start: 20170531
  2. TRUXIMA [Suspect]
     Active Substance: RITUXIMAB-ABBS
     Indication: DIFFUSE LARGE B-CELL LYMPHOMA
     Dosage: 660 MG
     Route: 042
     Dates: start: 20170517, end: 20171017
  3. PANTOPRAZOL [PANTOPRAZOLE] [Concomitant]
     Active Substance: PANTOPRAZOLE
     Dosage: 40 MG, 1-0-0
     Dates: start: 20170603, end: 20170606
  4. AMPHO MORONAL [Concomitant]
     Active Substance: AMPHOTERICIN B
     Dosage: 100 MG, 1-1-1-1
     Dates: start: 20170530, end: 20170606
  5. LAXANS-RATIOPHARM PICO [Concomitant]
     Dosage: 7.5 MG, 1-0-0
     Dates: start: 20170531, end: 20170601

REACTIONS (2)
  - Coronary artery disease [Recovering/Resolving]
  - Febrile neutropenia [Recovered/Resolved]

NARRATIVE: CASE EVENT DATE: 20170529
